FAERS Safety Report 7555284-8 (Version None)
Quarter: 2011Q2

REPORT INFORMATION
  Report Type: 
  Country: None (occurrence: None)
  Receive Date: 20110617
  Receipt Date: 20110614
  Transmission Date: 20111010
  Serious: Yes (Life-Threatening, Other)
  Sender: FDA-Public Use
  Company Number: PHHY2011US25532

PATIENT
  Sex: Female

DRUGS (2)
  1. MIACALCIN [Suspect]
     Dosage: UNK
  2. FOSAMAX [Suspect]
     Dosage: UNK

REACTIONS (5)
  - COMA [None]
  - FRACTURE [None]
  - RENAL DISORDER [None]
  - ARTERIAL OCCLUSIVE DISEASE [None]
  - PATHOLOGICAL FRACTURE [None]
